FAERS Safety Report 13524249 (Version 1)
Quarter: 2017Q2

REPORT INFORMATION
  Report Type: Spontaneous
  Country: US (occurrence: US)
  Receive Date: 20170508
  Receipt Date: 20170508
  Transmission Date: 20170830
  Serious: No
  Sender: FDA-Public Use
  Company Number: US-BRISTOL-MYERS SQUIBB COMPANY-BMS-2017-039668

PATIENT
  Sex: Female
  Weight: 85.26 kg

DRUGS (3)
  1. ORENCIA [Suspect]
     Active Substance: ABATACEPT
     Indication: OSTEOARTHRITIS
     Dosage: UNK
     Route: 058
     Dates: start: 201703
  2. ORENCIA [Suspect]
     Active Substance: ABATACEPT
     Indication: ARTHRITIS REACTIVE
     Route: 065
  3. OTREXUP [Suspect]
     Active Substance: METHOTREXATE
     Indication: PRODUCT USED FOR UNKNOWN INDICATION
     Dosage: 125 MG, QWK
     Route: 058

REACTIONS (8)
  - Weight decreased [Unknown]
  - Hypersensitivity [Unknown]
  - Cough [Unknown]
  - Product use in unapproved indication [Unknown]
  - Depression [Unknown]
  - Weight fluctuation [Unknown]
  - Rhinorrhoea [Unknown]
  - Anxiety [Unknown]
